FAERS Safety Report 9868986 (Version 2)
Quarter: 2014Q1

REPORT INFORMATION
  Report Type: Spontaneous
  Country: DK (occurrence: DK)
  Receive Date: 20140205
  Receipt Date: 20140218
  Transmission Date: 20141002
  Serious: Yes (Life-Threatening)
  Sender: FDA-Public Use
  Company Number: DK-ROCHE-1343502

PATIENT
  Age: 62 Year
  Sex: Female

DRUGS (8)
  1. HERCEPTIN [Suspect]
     Indication: BREAST CANCER RECURRENT
     Route: 042
     Dates: start: 20140129, end: 20140129
  2. LETROZOLE [Concomitant]
     Route: 065
     Dates: start: 20140124
  3. SIFROL [Concomitant]
     Indication: RESTLESS LEGS SYNDROME
     Route: 048
  4. ACETYLSALICYLIC ACID [Concomitant]
     Route: 048
  5. ARTHROTEC [Concomitant]
     Indication: PAIN
     Route: 048
  6. CENTYL K [Concomitant]
     Indication: OEDEMA
     Route: 048
  7. GABAPENTIN [Concomitant]
     Indication: PAIN
     Route: 048
  8. KALEORID [Concomitant]
     Route: 065

REACTIONS (4)
  - Platelet count decreased [Recovering/Resolving]
  - Ecchymosis [Recovering/Resolving]
  - Mouth haemorrhage [Recovered/Resolved]
  - Mucosal haemorrhage [Unknown]
